FAERS Safety Report 4979344-0 (Version None)
Quarter: 2006Q2

REPORT INFORMATION
  Report Type: 
  Country: None (occurrence: None)
  Receive Date: 20060421
  Receipt Date: 20060208
  Transmission Date: 20061013
  Serious: Yes (Hospitalization)
  Sender: FDA-Public Use
  Company Number: US-MERCK-0602USA02590

PATIENT
  Age: 68 Year
  Sex: Female
  Weight: 102 kg

DRUGS (5)
  1. VIOXX [Suspect]
     Indication: ARTHRALGIA
     Route: 048
     Dates: start: 20020910, end: 20040120
  2. FUROSEMIDE [Concomitant]
     Indication: OEDEMA
     Route: 065
     Dates: start: 20000101
  3. TOPROL-XL [Concomitant]
     Indication: HYPERTENSION
     Route: 065
  4. ASPIRIN [Concomitant]
     Route: 065
  5. COZAAR [Concomitant]
     Route: 065

REACTIONS (9)
  - CALCULUS BLADDER [None]
  - CORONARY ARTERY DISEASE [None]
  - COUGH [None]
  - INJURY [None]
  - MYOCARDIAL INFARCTION [None]
  - RENAL COLIC [None]
  - SMALL INTESTINAL OBSTRUCTION [None]
  - VENTRICULAR TACHYCARDIA [None]
  - VOMITING [None]
